FAERS Safety Report 13790907 (Version 3)
Quarter: 2017Q3

REPORT INFORMATION
  Report Type: Report from Study
  Country: US (occurrence: US)
  Receive Date: 20170725
  Receipt Date: 20170818
  Transmission Date: 20171127
  Serious: Yes (Hospitalization)
  Sender: FDA-Public Use
  Company Number: US-PFIZER INC-2017250627

PATIENT
  Age: 93 Year
  Sex: Female

DRUGS (2)
  1. IBRANCE [Suspect]
     Active Substance: PALBOCICLIB
     Dosage: 75 MG, CYCLIC (DAILY/14 DAYS ON AND 14 DAYS OFF)
     Route: 048
     Dates: start: 20170701, end: 20170714
  2. IBRANCE [Suspect]
     Active Substance: PALBOCICLIB
     Indication: BREAST CANCER METASTATIC
     Dosage: 100 MG, CYCLIC (DAILY 2 WEEKS ON 2 WEEKS OFF)
     Route: 048
     Dates: start: 20170604, end: 20170617

REACTIONS (6)
  - Asthenia [Recovering/Resolving]
  - Pulmonary thrombosis [Unknown]
  - Constipation [Recovering/Resolving]
  - Dizziness [Recovering/Resolving]
  - Dry mouth [Recovering/Resolving]
  - Condition aggravated [Recovering/Resolving]

NARRATIVE: CASE EVENT DATE: 201706
